FAERS Safety Report 7936363-X (Version None)
Quarter: 2011Q4

REPORT INFORMATION
  Report Type: 
  Country: None (occurrence: None)
  Receive Date: 20111123
  Receipt Date: 20111114
  Transmission Date: 20120403
  Serious: Yes (Disabling)
  Sender: FDA-Public Use
  Company Number: US-BAYER-201032331NA

PATIENT
  Age: 16 Year
  Sex: Female

DRUGS (7)
  1. YAZ [Suspect]
     Dosage: UNK
     Route: 048
     Dates: start: 20070201, end: 20080731
  2. ORAL CONTRACEPTIVE NOS [Concomitant]
     Route: 048
  3. VICODIN [Concomitant]
     Route: 048
  4. METFORMIN [Concomitant]
     Route: 048
  5. YASMIN [Suspect]
     Dosage: UNK
     Dates: start: 20070201, end: 20080731
  6. LEVOTHYROXINE SODIUM [Concomitant]
     Route: 048
  7. METHYLPHENIDATE [Concomitant]
     Route: 048

REACTIONS (7)
  - HEMIPLEGIA [None]
  - ANXIETY [None]
  - ABASIA [None]
  - CEREBROVASCULAR ACCIDENT [None]
  - THERMOANAESTHESIA [None]
  - APHASIA [None]
  - IMPAIRED HEALING [None]
